FAERS Safety Report 25837290 (Version 1)
Quarter: 2025Q3

REPORT INFORMATION
  Report Type: Spontaneous
  Country: US (occurrence: US)
  Receive Date: 20250923
  Receipt Date: 20250923
  Transmission Date: 20251021
  Serious: Yes (Other)
  Sender: AMGEN
  Company Number: US-AMGEN-USASP2025187092

PATIENT
  Age: 79 Year
  Sex: Female

DRUGS (13)
  1. BEVACIZUMAB [Suspect]
     Active Substance: BEVACIZUMAB
     Indication: Neovascularisation
  2. TOFACITINIB [Suspect]
     Active Substance: TOFACITINIB
     Indication: Rheumatoid arthritis
     Dosage: 11 MILLIGRAM, QD, (EXTENDED RELEASE)
     Route: 048
  3. TIMOLOL [Concomitant]
     Active Substance: TIMOLOL
     Dosage: UNK UNK, BID
     Route: 061
  4. BRIMONIDINE [Concomitant]
     Active Substance: BRIMONIDINE TARTRATE
     Dosage: UNK, TID
  5. BRINZOLAMIDE [Concomitant]
     Active Substance: BRINZOLAMIDE
     Dosage: UNK, TID
  6. Latanoprost;Netarsudil mesilate [Concomitant]
  7. ACETAZOLAMIDE [Concomitant]
     Active Substance: ACETAZOLAMIDE
     Dosage: 250 MILLIGRAM, TID
     Route: 048
  8. ALENDRONATE [Concomitant]
     Active Substance: ALENDRONATE SODIUM
  9. GLIPIZIDE [Concomitant]
     Active Substance: GLIPIZIDE
  10. ROSUVASTATIN [Concomitant]
     Active Substance: ROSUVASTATIN
  11. HYDROCHLOROTHIAZIDE [Concomitant]
     Active Substance: HYDROCHLOROTHIAZIDE
  12. TRAMADOL [Concomitant]
     Active Substance: TRAMADOL
  13. MECLIZINE [Concomitant]
     Active Substance: MECLIZINE HYDROCHLORIDE

REACTIONS (9)
  - Cytomegalovirus chorioretinitis [Unknown]
  - Retinal haemorrhage [Unknown]
  - Iridocyclitis [Unknown]
  - Chorioretinitis [Unknown]
  - Vitreous haemorrhage [Unknown]
  - Retinal degeneration [Unknown]
  - Optic atrophy [Unknown]
  - Platelet count decreased [Unknown]
  - Off label use [Unknown]
